FAERS Safety Report 9071283 (Version 1)
Quarter: 2013Q1

REPORT INFORMATION
  Report Type: Report from Study
  Country: US (occurrence: US)
  Receive Date: 20130129
  Receipt Date: 20130129
  Transmission Date: 20140127
  Serious: No
  Sender: FDA-Public Use
  Company Number: US-ABBOTT-12P-163-0921042-00

PATIENT
  Age: 36 Year
  Sex: Female

DRUGS (7)
  1. HUMIRA 40 MG/0.8 ML PEN [Suspect]
     Indication: UVEITIS
     Dates: start: 201202
  2. HUMIRA 40 MG/0.8 ML PEN [Suspect]
     Indication: ARTHRITIS REACTIVE
  3. CLONAZEPAM [Concomitant]
     Indication: ANXIETY
  4. MULTIVITAMIN [Concomitant]
     Indication: PRODUCT USED FOR UNKNOWN INDICATION
  5. OMEPRAZOLE [Concomitant]
     Indication: DYSPEPSIA
     Dosage: DAILY
  6. BIOTIN [Concomitant]
     Indication: PRODUCT USED FOR UNKNOWN INDICATION
     Dosage: DAILY (UNKNOWN DOSE)
  7. PROBIOTIC [Concomitant]
     Indication: PROPHYLAXIS

REACTIONS (4)
  - Injection site induration [Recovering/Resolving]
  - Injection site vesicles [Recovering/Resolving]
  - Injection site erythema [Recovering/Resolving]
  - Injection site pruritus [Recovering/Resolving]
